FAERS Safety Report 25646658 (Version 1)
Quarter: 2025Q3

REPORT INFORMATION
  Report Type: Report from Study
  Country: US (occurrence: US)
  Receive Date: 20250805
  Receipt Date: 20250805
  Transmission Date: 20251020
  Serious: No
  Sender: BIOGEN
  Company Number: US-BIOGEN-2025BI01319250

PATIENT

DRUGS (1)
  1. ZURZUVAE [Suspect]
     Active Substance: ZURANOLONE
     Indication: Perinatal depression
     Dosage: FOR 14 DAYS
     Route: 050

REACTIONS (2)
  - Somnolence neonatal [Unknown]
  - Exposure via breast milk [Unknown]
